FAERS Safety Report 6150158-1 (Version None)
Quarter: 2009Q2

REPORT INFORMATION
  Report Type: 
  Country: None (occurrence: None)
  Receive Date: 20090409
  Receipt Date: 20090305
  Transmission Date: 20091009
  Serious: Yes (Hospitalization, Other)
  Sender: FDA-Public Use
  Company Number: FR-PFIZER INC-2009180576

PATIENT

DRUGS (11)
  1. ATORVASTATIN CALCIUM [Suspect]
     Indication: CEREBROVASCULAR ACCIDENT
     Dosage: 40 MG, 1X/DAY
     Dates: start: 20081019, end: 20081105
  2. AZTREONAM [Suspect]
     Indication: URINARY TRACT INFECTION
     Dosage: 1 G, 3X/DAY
     Dates: start: 20081103, end: 20081109
  3. VANCOMYCIN HCL [Suspect]
     Indication: URINARY TRACT INFECTION
     Route: 042
     Dates: start: 20081103, end: 20081110
  4. MIDAZOLAM HYDROCHLORIDE [Suspect]
     Indication: SEDATION
     Dosage: FREQUENCY: HOUR,
     Dates: start: 20081030, end: 20081108
  5. SUFENTANYL [Suspect]
     Indication: SEDATION
     Dosage: FREQUENCY: HOUR,
     Route: 042
     Dates: start: 20081030, end: 20081108
  6. AMOXICILLIN AND CLAVULANATE POTASSIUM [Suspect]
     Indication: TOOTH ABSCESS
     Dosage: 1 G, 3X/DAY
     Dates: start: 20081019, end: 20081030
  7. GENTAMICIN SULFATE [Suspect]
     Route: 042
     Dates: start: 20081102, end: 20081103
  8. ACETYLSALICYLATE LYSINE [Concomitant]
  9. PAROXETINE [Concomitant]
  10. BROMAZEPAM [Concomitant]
  11. HEPARIN [Concomitant]
     Dates: start: 20081022

REACTIONS (1)
  - CYTOLYTIC HEPATITIS [None]
